FAERS Safety Report 19053527 (Version 1)
Quarter: 2021Q1

REPORT INFORMATION
  Report Type: Spontaneous
  Country: US (occurrence: US)
  Receive Date: 20210324
  Receipt Date: 20210324
  Transmission Date: 20210420
  Serious: No
  Sender: FDA-Public Use
  Company Number: US-009507513-2103USA003424

PATIENT
  Age: 73 Year
  Sex: Male

DRUGS (2)
  1. TEMODAR [Suspect]
     Active Substance: TEMOZOLOMIDE
     Indication: T-CELL LYMPHOMA
     Dosage: 150 MG/M2 (300MG DOSE) DOSED DAYS 1?5 OF 28?DAY CYCLES, 18 CYCLES IN TOTAL
     Route: 048
     Dates: start: 2017, end: 201903
  2. DECADRON [Concomitant]
     Active Substance: DEXAMETHASONE
     Dosage: 2MG TWICE A DAY

REACTIONS (3)
  - Off label use [Unknown]
  - Fatigue [Unknown]
  - Constipation [Unknown]
